FAERS Safety Report 7429016-8 (Version None)
Quarter: 2011Q2

REPORT INFORMATION
  Report Type: 
  Country: None (occurrence: None)
  Receive Date: 20110421
  Receipt Date: 20110413
  Transmission Date: 20111010
  Serious: Yes (Life-Threatening, Hospitalization, Other)
  Sender: FDA-Public Use
  Company Number: US-ASTRAZENECA-2010SE21390

PATIENT
  Age: 56 Year
  Sex: Male

DRUGS (1)
  1. NEXIUM [Suspect]
     Route: 048

REACTIONS (10)
  - RENAL DISORDER [None]
  - DIABETES MELLITUS [None]
  - DRUG DOSE OMISSION [None]
  - CARDIAC FAILURE CONGESTIVE [None]
  - MYOCARDIAL INFARCTION [None]
  - UROSEPSIS [None]
  - DYSPHAGIA [None]
  - NEPHROLITHIASIS [None]
  - SEPTIC SHOCK [None]
  - GOUT [None]
